FAERS Safety Report 5212953-2 (Version None)
Quarter: 2007Q1

REPORT INFORMATION
  Report Type: 
  Country: None (occurrence: None)
  Receive Date: 20070119
  Receipt Date: 20070109
  Transmission Date: 20070707
  Serious: Yes (Hospitalization)
  Sender: FDA-Public Use
  Company Number: PHRM2007FR00486

PATIENT
  Age: 66 Year
  Sex: Female

DRUGS (3)
  1. ZOMETA [Suspect]
     Indication: METASTASES TO BONE
     Route: 042
     Dates: start: 20000101, end: 20050501
  2. AROMASIN [Concomitant]
     Indication: BREAST CANCER METASTATIC
  3. LYTOS [Suspect]
     Dates: start: 20050501

REACTIONS (6)
  - FISTULA [None]
  - INFLAMMATION [None]
  - OSTEITIS [None]
  - OSTEOMYELITIS [None]
  - PURULENT DISCHARGE [None]
  - SURGERY [None]
